FAERS Safety Report 16930041 (Version 1)
Quarter: 2019Q4

REPORT INFORMATION
  Report Type: Spontaneous
  Country: RO (occurrence: RO)
  Receive Date: 20191017
  Receipt Date: 20191017
  Transmission Date: 20200122
  Serious: Yes (Other)
  Sender: FDA-Public Use
  Company Number: RO-SA-2019SA260146

PATIENT
  Age: 40 Year
  Sex: Female

DRUGS (3)
  1. TOUJEO [Suspect]
     Active Substance: INSULIN GLARGINE
     Indication: TYPE 1 DIABETES MELLITUS
     Dosage: 29 IU
     Route: 065
  2. NOVORAPID [Concomitant]
     Active Substance: INSULIN ASPART
     Dosage: 10-12 IU/BODY KG ON EACH MEAL
  3. TOUJEO [Suspect]
     Active Substance: INSULIN GLARGINE
     Dosage: 50 IU
     Route: 065
     Dates: start: 20190731

REACTIONS (5)
  - Injection site hypersensitivity [Unknown]
  - Product use issue [Unknown]
  - Exposure during pregnancy [Unknown]
  - Cholecystitis acute [Unknown]
  - Blood glucose increased [Unknown]
